FAERS Safety Report 8293816-5 (Version None)
Quarter: 2012Q2

REPORT INFORMATION
  Report Type: 
  Country: None (occurrence: None)
  Receive Date: 20120413
  Receipt Date: 20090506
  Transmission Date: 20120825
  Serious: Yes (Other)
  Sender: FDA-Public Use
  Company Number: GGEL20110200081

PATIENT
  Age: 79 Year
  Sex: Female

DRUGS (1)
  1. FLUCONAZOLE [Suspect]
     Indication: FUNGAL INFECTION
     Dosage: 1 IN ONCE, ORAL
     Route: 048
     Dates: start: 20090428, end: 20090428

REACTIONS (3)
  - CONTUSION [None]
  - LOSS OF CONSCIOUSNESS [None]
  - FALL [None]
